FAERS Safety Report 5635903-3 (Version None)
Quarter: 2008Q1

REPORT INFORMATION
  Report Type: 
  Country: None (occurrence: None)
  Receive Date: 20080219
  Receipt Date: 20080211
  Transmission Date: 20080703
  Serious: Yes (Life-Threatening, Hospitalization)
  Sender: FDA-Public Use
  Company Number: 056-21880-08011358

PATIENT
  Age: 55 Year
  Sex: Male
  Weight: 66 kg

DRUGS (2)
  1. REVLIMID [Suspect]
     Indication: MULTIPLE MYELOMA
     Dosage: 15 MG, DAILY, ORAL
     Route: 048
     Dates: start: 20071117, end: 20071220
  2. DEXAMETHASONE TAB [Concomitant]

REACTIONS (3)
  - ALVEOLITIS [None]
  - LUNG DISORDER [None]
  - RENAL FAILURE [None]
